FAERS Safety Report 9964602 (Version 1)
Quarter: 2014Q1

REPORT INFORMATION
  Report Type: Spontaneous
  Country: US (occurrence: US)
  Receive Date: 20140305
  Receipt Date: 20140305
  Transmission Date: 20141002
  Serious: No
  Sender: FDA-Public Use
  Company Number: US-AMGEN-USASP2013087394

PATIENT
  Age: 34 Year
  Sex: Female

DRUGS (7)
  1. ENBREL [Suspect]
     Indication: RHEUMATOID ARTHRITIS
     Dosage: 50 MG, QWK
     Route: 058
     Dates: start: 201309, end: 201311
  2. ATIVAN [Concomitant]
     Dosage: UNK
  3. SEROQUEL [Concomitant]
     Dosage: UNK
  4. EFFEXOR [Concomitant]
     Dosage: UNK
  5. ARAVA [Concomitant]
     Dosage: UNK
  6. ELAVIL                             /00002202/ [Concomitant]
     Dosage: UNK
  7. FLEXERIL                           /00428402/ [Concomitant]
     Dosage: UNK

REACTIONS (3)
  - Drug intolerance [Unknown]
  - Injection site swelling [Unknown]
  - Injection site erythema [Unknown]
